FAERS Safety Report 25659735 (Version 1)
Quarter: 2025Q3

REPORT INFORMATION
  Report Type: Spontaneous
  Country: US (occurrence: US)
  Receive Date: 20250808
  Receipt Date: 20250808
  Transmission Date: 20251020
  Serious: Yes (Life-Threatening, Hospitalization)
  Sender: MYLAN
  Company Number: US-MYLANLABS-2025M1066178

PATIENT
  Age: 20 Year
  Sex: Male

DRUGS (20)
  1. TACROLIMUS [Suspect]
     Active Substance: TACROLIMUS
     Indication: Prophylaxis against graft versus host disease
  2. TACROLIMUS [Suspect]
     Active Substance: TACROLIMUS
     Route: 065
  3. TACROLIMUS [Suspect]
     Active Substance: TACROLIMUS
     Route: 065
  4. TACROLIMUS [Suspect]
     Active Substance: TACROLIMUS
  5. MYCOPHENOLATE MOFETIL [Suspect]
     Active Substance: MYCOPHENOLATE MOFETIL
     Indication: Prophylaxis against graft versus host disease
     Dosage: 1 GRAM, BID
  6. MYCOPHENOLATE MOFETIL [Suspect]
     Active Substance: MYCOPHENOLATE MOFETIL
     Dosage: 1 GRAM, BID
     Route: 065
  7. MYCOPHENOLATE MOFETIL [Suspect]
     Active Substance: MYCOPHENOLATE MOFETIL
     Dosage: 1 GRAM, BID
     Route: 065
  8. MYCOPHENOLATE MOFETIL [Suspect]
     Active Substance: MYCOPHENOLATE MOFETIL
     Dosage: 1 GRAM, BID
  9. PREDNISONE [Suspect]
     Active Substance: PREDNISONE
     Indication: Prophylaxis against graft versus host disease
     Dosage: 10 MILLIGRAM, QD
  10. PREDNISONE [Suspect]
     Active Substance: PREDNISONE
     Dosage: 10 MILLIGRAM, QD
     Route: 065
  11. PREDNISONE [Suspect]
     Active Substance: PREDNISONE
     Dosage: 10 MILLIGRAM, QD
     Route: 065
  12. PREDNISONE [Suspect]
     Active Substance: PREDNISONE
     Dosage: 10 MILLIGRAM, QD
  13. SIROLIMUS [Concomitant]
     Active Substance: SIROLIMUS
     Indication: Graft versus host disease
     Dosage: 1 MILLIGRAM, QD
  14. SIROLIMUS [Concomitant]
     Active Substance: SIROLIMUS
     Dosage: 1 MILLIGRAM, QD
     Route: 065
  15. SIROLIMUS [Concomitant]
     Active Substance: SIROLIMUS
     Dosage: 1 MILLIGRAM, QD
     Route: 065
  16. SIROLIMUS [Concomitant]
     Active Substance: SIROLIMUS
     Dosage: 1 MILLIGRAM, QD
  17. CYCLOSPORINE [Concomitant]
     Active Substance: CYCLOSPORINE
     Indication: Graft versus host disease
     Dosage: 125 MILLIGRAM, BID
  18. CYCLOSPORINE [Concomitant]
     Active Substance: CYCLOSPORINE
     Dosage: 125 MILLIGRAM, BID
     Route: 065
  19. CYCLOSPORINE [Concomitant]
     Active Substance: CYCLOSPORINE
     Dosage: 125 MILLIGRAM, BID
     Route: 065
  20. CYCLOSPORINE [Concomitant]
     Active Substance: CYCLOSPORINE
     Dosage: 125 MILLIGRAM, BID

REACTIONS (1)
  - Drug ineffective [Unknown]
